FAERS Safety Report 5785067-0 (Version None)
Quarter: 2008Q2

REPORT INFORMATION
  Report Type: 
  Country: None (occurrence: None)
  Receive Date: 20080605
  Receipt Date: 20080421
  Transmission Date: 20081010
  Serious: No
  Sender: FDA-Public Use
  Company Number: A0723799A

PATIENT
  Age: 58 Year
  Sex: Female

DRUGS (3)
  1. ALLI [Suspect]
     Dates: start: 20080414
  2. MULTI-VITAMIN [Concomitant]
  3. SYNTHROID [Concomitant]

REACTIONS (2)
  - FEELING JITTERY [None]
  - RESTLESSNESS [None]
